FAERS Safety Report 25233363 (Version 1)
Quarter: 2025Q2

REPORT INFORMATION
  Report Type: Spontaneous
  Country: GB (occurrence: None)
  Receive Date: 20250424
  Receipt Date: 20250424
  Transmission Date: 20250716
  Serious: Yes (Other)
  Sender: Alvotech
  Company Number: None

PATIENT
  Age: 41 Year
  Sex: Female

DRUGS (1)
  1. USTEKINUMAB [Suspect]
     Active Substance: USTEKINUMAB
     Indication: Crohn^s disease
     Dates: start: 20250414

REACTIONS (5)
  - Muscular weakness [Unknown]
  - Fatigue [Unknown]
  - Hot flush [Unknown]
  - Injection related reaction [Unknown]
  - Nausea [Unknown]

NARRATIVE: CASE EVENT DATE: 20250415
